FAERS Safety Report 7057054-6 (Version None)
Quarter: 2010Q4

REPORT INFORMATION
  Report Type: 
  Country: None (occurrence: None)
  Receive Date: 20101022
  Receipt Date: 20101012
  Transmission Date: 20110411
  Serious: Yes (Other)
  Sender: FDA-Public Use
  Company Number: US-BAYER-201028662NA

PATIENT
  Age: 17 Year
  Sex: Female
  Weight: 73 kg

DRUGS (7)
  1. YASMIN [Suspect]
     Indication: CONTRACEPTION
     Route: 048
     Dates: start: 20050801, end: 20080301
  2. YAZ [Suspect]
     Indication: PRODUCT USED FOR UNKNOWN INDICATION
     Route: 048
     Dates: start: 20050601
  3. ALBUTEROL [Concomitant]
     Indication: ASTHMA
     Dosage: 2 PUFFS TID PRN
     Dates: start: 20060421
  4. PROMETHAZINE [Concomitant]
     Dates: start: 20060628
  5. LEVAQUIN [Concomitant]
     Dates: start: 20060630
  6. AVELOX [Concomitant]
     Dates: start: 20060701
  7. CIPROFLOXACIN [Concomitant]
     Dates: start: 20060301

REACTIONS (3)
  - ABDOMINAL PAIN [None]
  - CHOLECYSTITIS CHRONIC [None]
  - CHOLELITHIASIS [None]
